FAERS Safety Report 12287155 (Version 1)
Quarter: 2016Q2

REPORT INFORMATION
  Report Type: Other
  Country: JP (occurrence: JP)
  Receive Date: 20160420
  Receipt Date: 20160420
  Transmission Date: 20160815
  Serious: Yes (Other)
  Sender: FDA-Public Use
  Company Number: JP-WARNER CHILCOTT, LLC-1050787

PATIENT
  Age: 81 Year
  Sex: Female

DRUGS (1)
  1. ACTONEL [Suspect]
     Active Substance: RISEDRONATE SODIUM
     Route: 048

REACTIONS (7)
  - Atypical femur fracture [Recovering/Resolving]
  - Mobility decreased [Recovered/Resolved]
  - Pain in extremity [Recovering/Resolving]
  - Atypical femur fracture [Recovered/Resolved]
  - Pain in extremity [Recovered/Resolved]
  - Bone disorder [Recovering/Resolving]
  - Mobility decreased [Recovering/Resolving]

NARRATIVE: CASE EVENT DATE: 201210
